FAERS Safety Report 8413847-1 (Version None)
Quarter: 2012Q2

REPORT INFORMATION
  Report Type: 
  Country: None (occurrence: None)
  Receive Date: 20120605
  Receipt Date: 20120529
  Transmission Date: 20120825
  Serious: Yes (Other)
  Sender: FDA-Public Use
  Company Number: US-ALEXION PHARMACEUTICALS INC.-A201201066

PATIENT
  Age: 33 Year
  Sex: Female

DRUGS (5)
  1. SOLIRIS [Suspect]
     Indication: THROMBOTIC MICROANGIOPATHY
     Dosage: 600 MG, UNK
     Route: 042
  2. SOLIRIS [Suspect]
     Dosage: 900 MG, QW X 4WEEKS
     Route: 042
     Dates: start: 20100101
  3. SOLIRIS [Suspect]
     Dosage: 1200 MG, UNK
     Route: 042
  4. SOLIRIS [Suspect]
     Indication: HAEMOLYTIC URAEMIC SYNDROME
     Dosage: 900 MG, UNK
     Route: 042
     Dates: start: 20090101
  5. SOLIRIS [Suspect]
     Dosage: 1200 MG, Q2W
     Route: 042
     Dates: start: 20100101

REACTIONS (1)
  - RENAL TUBULAR NECROSIS [None]
